FAERS Safety Report 5754454-9 (Version None)
Quarter: 2008Q2

REPORT INFORMATION
  Report Type: 
  Country: None (occurrence: None)
  Receive Date: 20080530
  Receipt Date: 20080505
  Transmission Date: 20081010
  Serious: No
  Sender: FDA-Public Use
  Company Number: US-BOEHRINGER INGELHEIM GMBH, GERMANY-2008-BP-07042BP

PATIENT
  Sex: Male

DRUGS (2)
  1. CATAPRES-TTS-1 [Suspect]
     Indication: HYPERTENSION
     Route: 061
     Dates: start: 20050801
  2. CATAPRES-TTS-1 [Suspect]

REACTIONS (3)
  - APPLICATION SITE PRURITUS [None]
  - SKIN HAEMORRHAGE [None]
  - SKIN IRRITATION [None]
